FAERS Safety Report 18489573 (Version 1)
Quarter: 2020Q4

REPORT INFORMATION
  Report Type: Spontaneous
  Country: BR (occurrence: BR)
  Receive Date: 20201111
  Receipt Date: 20201111
  Transmission Date: 20210114
  Serious: Yes (Other)
  Sender: FDA-Public Use
  Company Number: BR-ROCHE-2709855

PATIENT
  Age: 21 Year
  Sex: Female

DRUGS (1)
  1. RANIBIZUMAB. [Suspect]
     Active Substance: RANIBIZUMAB
     Indication: DIABETIC RETINOPATHY
     Dosage: UNK
     Route: 065

REACTIONS (6)
  - Vitreous haemorrhage [Recovering/Resolving]
  - Retinal neovascularisation [Recovering/Resolving]
  - Diabetic retinopathy [Not Recovered/Not Resolved]
  - Retinopathy proliferative [Recovering/Resolving]
  - Retinal degeneration [Recovering/Resolving]
  - Visual acuity reduced [Recovering/Resolving]
